FAERS Safety Report 8601787-4 (Version None)
Quarter: 2012Q3

REPORT INFORMATION
  Report Type: 
  Country: None (occurrence: None)
  Receive Date: 20120817
  Receipt Date: 20120521
  Transmission Date: 20120928
  Serious: Yes (Hospitalization, Other)
  Sender: FDA-Public Use
  Company Number: US-BRISTOL-MYERS SQUIBB COMPANY-16514846

PATIENT
  Age: 73 Year
  Sex: Female

DRUGS (9)
  1. VICODIN [Concomitant]
     Indication: PAIN
     Dosage: 5/500MG
     Route: 048
  2. ARIMIDEX [Concomitant]
     Route: 048
  3. LASIX [Concomitant]
     Route: 048
  4. CALCIUM CARBONATE [Concomitant]
     Route: 048
  5. SPRYCEL [Suspect]
     Indication: CHRONIC MYELOID LEUKAEMIA
     Dosage: INTER ON:23NOV11.RESUMED ON:MAR12 50MG EVERY OTHER DAY
     Route: 048
  6. BETAPACE [Concomitant]
     Route: 048
  7. COLACE [Concomitant]
     Route: 048
  8. MICRO-K [Concomitant]
     Route: 048
  9. PRAVASTATIN [Concomitant]
     Route: 048

REACTIONS (2)
  - PLEURAL EFFUSION [None]
  - PERICARDIAL EFFUSION [None]
